FAERS Safety Report 15798162 (Version 2)
Quarter: 2019Q1

REPORT INFORMATION
  Report Type: Spontaneous
  Country: US (occurrence: US)
  Receive Date: 20190108
  Receipt Date: 20190119
  Transmission Date: 20190417
  Serious: No
  Sender: FDA-Public Use
  Company Number: US-TEVA-2018-US-991845

PATIENT
  Sex: Male

DRUGS (1)
  1. TESTOSTERONE CYPIONATE ACTAVIS [Suspect]
     Active Substance: TESTOSTERONE CYPIONATE
     Dosage: 10ML 2,000MG TESTOSTERONE CYPIONATE BOTTLES

REACTIONS (5)
  - Fatigue [Unknown]
  - Product packaging quantity issue [Unknown]
  - Asthenia [Unknown]
  - Hormone level abnormal [Unknown]
  - Adverse reaction [Unknown]
